FAERS Safety Report 7459577-4 (Version None)
Quarter: 2011Q2

REPORT INFORMATION
  Report Type: 
  Country: None (occurrence: None)
  Receive Date: 20110505
  Receipt Date: 20110504
  Transmission Date: 20111010
  Serious: Yes (Other)
  Sender: FDA-Public Use
  Company Number: IT-PFIZER INC-2011095825

PATIENT
  Age: 83 Year
  Sex: Male

DRUGS (3)
  1. TRIATEC [Concomitant]
     Dosage: UNK
     Route: 065
  2. PREGABALIN [Suspect]
     Indication: HUMERUS FRACTURE
     Dosage: 75 MG, 1X/DAY
     Route: 065
  3. ASPIRIN [Concomitant]
     Dosage: UNK
     Route: 065

REACTIONS (9)
  - ACNE [None]
  - DIZZINESS [None]
  - LIP SWELLING [None]
  - GLOSSOPHARYNGEAL NEURALGIA [None]
  - GLOSSODYNIA [None]
  - SWELLING FACE [None]
  - VERTIGO [None]
  - SWOLLEN TONGUE [None]
  - EYELID OEDEMA [None]
